FAERS Safety Report 5083321-1 (Version None)
Quarter: 2006Q3

REPORT INFORMATION
  Report Type: 
  Country: None (occurrence: None)
  Receive Date: 20060816
  Receipt Date: 20060811
  Transmission Date: 20061208
  Serious: Yes (Hospitalization, Other)
  Sender: FDA-Public Use
  Company Number: TPA2006A00360

PATIENT
  Age: 49 Year
  Sex: Male
  Weight: 122.4712 kg

DRUGS (4)
  1. ACTOS [Suspect]
     Indication: DIABETES MELLITUS NON-INSULIN-DEPENDENT
     Dosage: 30 MG, 1 IN 1 D, PER ORAL
     Route: 048
     Dates: start: 20060118, end: 20060222
  2. CRESTOR [Suspect]
     Indication: BLOOD CHOLESTEROL INCREASED
     Dosage: 10 MG, 1 IN 1 D, PER ORAL
     Route: 048
     Dates: start: 20060118, end: 20060222
  3. HYDROCHLOROTHIAZDE TAB [Suspect]
     Indication: BLOOD PRESSURE INCREASED
     Dosage: 12.5 MG, 1 IN 1 D, PER ORAL
     Route: 048
     Dates: start: 20060118, end: 20060222
  4. BENICAR [Suspect]
     Indication: BLOOD PRESSURE INCREASED
     Dosage: 20 MG, 1 IN 1 D, PER ORAL
     Route: 048
     Dates: start: 20060118, end: 20060222

REACTIONS (4)
  - ALANINE AMINOTRANSFERASE INCREASED [None]
  - ASPARTATE AMINOTRANSFERASE INCREASED [None]
  - DIALYSIS [None]
  - RENAL FAILURE ACUTE [None]
